FAERS Safety Report 24946232 (Version 1)
Quarter: 2025Q1

REPORT INFORMATION
  Report Type: Spontaneous
  Country: CN (occurrence: CN)
  Receive Date: 20250210
  Receipt Date: 20250210
  Transmission Date: 20250409
  Serious: Yes (Hospitalization, Other)
  Sender: ALKEM
  Company Number: None

PATIENT
  Age: 85 Year
  Sex: Female

DRUGS (3)
  1. LINEZOLID [Suspect]
     Active Substance: LINEZOLID
     Indication: Antibiotic therapy
     Dosage: 0.6 GRAM, BID (EVERY 12 HOURS), INJECTION
     Route: 042
  2. LINEZOLID [Suspect]
     Active Substance: LINEZOLID
     Dosage: INCREASED TO 0.3 GRAM, BID (EVERY 12 HOURS), (ON DAY 7)
     Route: 048
  3. INSULIN NOS [Concomitant]
     Active Substance: INSULIN NOS
     Indication: Diabetes mellitus
     Route: 065

REACTIONS (5)
  - Serotonin syndrome [Recovered/Resolved]
  - Thrombocytopenia [Recovered/Resolved]
  - Overdose [Unknown]
  - Drug level decreased [Recovered/Resolved]
  - Hyperlactacidaemia [Recovered/Resolved]
